FAERS Safety Report 5396562-0 (Version None)
Quarter: 2007Q3

REPORT INFORMATION
  Report Type: 
  Country: None (occurrence: None)
  Receive Date: 20070725
  Receipt Date: 20070716
  Transmission Date: 20080115
  Serious: Yes (Hospitalization)
  Sender: FDA-Public Use
  Company Number: GB-ASTRAZENECA-2007GB01484

PATIENT
  Age: 66 Year
  Sex: Male

DRUGS (2)
  1. SEROQUEL [Suspect]
     Indication: AGITATION
     Route: 048
     Dates: start: 20070712, end: 20070712
  2. SEROQUEL [Suspect]
     Indication: HYPOMANIA
     Route: 048
     Dates: start: 20070712, end: 20070712

REACTIONS (4)
  - CONVULSION [None]
  - HYPERHIDROSIS [None]
  - LOSS OF CONSCIOUSNESS [None]
  - PALLOR [None]
